FAERS Safety Report 15617209 (Version 2)
Quarter: 2018Q4

REPORT INFORMATION
  Report Type: Spontaneous
  Country: US (occurrence: US)
  Receive Date: 20181114
  Receipt Date: 20181221
  Transmission Date: 20190205
  Serious: Yes (Hospitalization)
  Sender: FDA-Public Use
  Company Number: US-THERAPEUTICSMD-2018TMD00314

PATIENT
  Age: 60 Year
  Sex: Female
  Weight: 99.77 kg

DRUGS (10)
  1. AMOXICILLIN. [Concomitant]
     Active Substance: AMOXICILLIN
  2. TRAMADOL. [Concomitant]
     Active Substance: TRAMADOL
     Dosage: UNK, AS NEEDED
  3. TRAZODONE [Concomitant]
     Active Substance: TRAZODONE HYDROCHLORIDE
  4. GABAPENTIN. [Concomitant]
     Active Substance: GABAPENTIN
  5. OMEPRAZOLE. [Concomitant]
     Active Substance: OMEPRAZOLE
     Dosage: UNK, EVERY 48 HOURS
  6. TIZANIDINE. [Concomitant]
     Active Substance: TIZANIDINE
  7. VITAMINS [Concomitant]
     Active Substance: VITAMINS
  8. IMVEXXY [Suspect]
     Active Substance: ESTRADIOL
     Indication: PROLAPSE
     Dosage: 10 ?G, 2X/WEEK AT BEDTIME
     Route: 067
     Dates: start: 2018
  9. IMVEXXY [Suspect]
     Active Substance: ESTRADIOL
     Indication: VULVOVAGINAL DISCOMFORT
  10. HYDROCODONE 5/325 [Concomitant]
     Active Substance: HYDROCODONE
     Dosage: UNK, AS NEEDED

REACTIONS (6)
  - Vulvovaginal pain [Recovered/Resolved]
  - Hip arthroplasty [Recovered/Resolved]
  - Off label use [Not Recovered/Not Resolved]
  - Osteoarthritis [Unknown]
  - Product dose omission [Recovered/Resolved]
  - Product use complaint [Recovered/Resolved]

NARRATIVE: CASE EVENT DATE: 2018
